FAERS Safety Report 5963100-0 (Version None)
Quarter: 2008Q4

REPORT INFORMATION
  Report Type: 
  Country: None (occurrence: None)
  Receive Date: 20081119
  Receipt Date: 20081002
  Transmission Date: 20090506
  Serious: No
  Sender: FDA-Public Use
  Company Number: WAES 0810USA00428

PATIENT
  Age: 49 Year
  Sex: Male

DRUGS (12)
  1. JANUVIA [Suspect]
     Indication: TYPE 2 DIABETES MELLITUS
     Dosage: 100 MG/DAILY/PO
     Route: 048
     Dates: start: 20080926
  2. AVANDIA [Concomitant]
  3. HYZAAR [Concomitant]
  4. LIPITOR [Concomitant]
  5. ALPRAZOLAM [Concomitant]
  6. ASPIRIN [Concomitant]
  7. BUSPIRONE HCL [Concomitant]
  8. CITALOPRAM HYDROBROMIDE [Concomitant]
  9. CLONAZEPAM [Concomitant]
  10. ENALAPRIL MALEATE [Concomitant]
  11. FERROUS GLUCONATE [Concomitant]
  12. GLYBURIDE [Concomitant]

REACTIONS (2)
  - DRUG INEFFECTIVE [None]
  - WRONG TECHNIQUE IN DRUG USAGE PROCESS [None]
